FAERS Safety Report 12531706 (Version 1)
Quarter: 2016Q3

REPORT INFORMATION
  Report Type: Report from Study
  Country: ES (occurrence: ES)
  Receive Date: 20160706
  Receipt Date: 20160706
  Transmission Date: 20161109
  Serious: Yes (Death, Hospitalization)
  Sender: FDA-Public Use
  Company Number: ES-BAYER-2016-125810

PATIENT
  Age: 77 Year
  Sex: Female

DRUGS (10)
  1. ZONEGRAN [Concomitant]
     Active Substance: ZONISAMIDE
     Indication: EPILEPSY
     Dosage: 50 MG, BID
     Route: 048
     Dates: start: 20140805
  2. ADIRO 100 MG GASTRO-RESISTANT TABLETS [Suspect]
     Active Substance: ASPIRIN
     Indication: MYOCARDIAL ISCHAEMIA
     Dosage: 100 MG, QD
     Route: 048
     Dates: start: 20141022, end: 20150222
  3. AVAMYS [Concomitant]
     Active Substance: FLUTICASONE FUROATE
     Indication: ASTHMA
     Dosage: 26.5 MG, BID
     Route: 055
     Dates: start: 20100510
  4. HIDROFEROL [Concomitant]
     Active Substance: CALCIFEDIOL
     Route: 048
     Dates: start: 20121015
  5. PARACETAMOL [Concomitant]
     Active Substance: ACETAMINOPHEN
     Indication: PAIN
     Dosage: 1 G, UNK
     Route: 048
  6. FESOTERODINE [Concomitant]
     Active Substance: FESOTERODINE
     Indication: AUTOMATIC BLADDER
     Dosage: 8 MG, QD
     Route: 048
     Dates: start: 20111215
  7. ENALAPRIL [Concomitant]
     Active Substance: ENALAPRIL
     Indication: HYPERTENSION
     Dosage: 5 MG, QD
     Route: 048
     Dates: start: 20141022
  8. SINTROM [Interacting]
     Active Substance: ACENOCOUMAROL
     Indication: ATRIAL FIBRILLATION
     Route: 048
     Dates: start: 20150211, end: 20150222
  9. DEPAKINE CRONO [Interacting]
     Active Substance: VALPROIC ACID
     Indication: EPILEPSY
     Dosage: 500 MG, BID
     Route: 048
     Dates: start: 20140723, end: 20150222
  10. RILAST [Concomitant]
     Active Substance: BUDESONIDE\FORMOTEROL
     Indication: ASTHMA
     Dosage: 1 DF, QD
     Route: 055
     Dates: start: 20120208

REACTIONS (7)
  - Cardiac failure [None]
  - Coagulopathy [Not Recovered/Not Resolved]
  - Subcutaneous haematoma [Not Recovered/Not Resolved]
  - Tachycardia [None]
  - Fall [None]
  - Haematoma [Not Recovered/Not Resolved]
  - Atrial fibrillation [None]

NARRATIVE: CASE EVENT DATE: 20150222
